FAERS Safety Report 7352456-2 (Version None)
Quarter: 2011Q1

REPORT INFORMATION
  Report Type: 
  Country: None (occurrence: None)
  Receive Date: 20110304
  Receipt Date: 20110217
  Transmission Date: 20110831
  Serious: Yes (Hospitalization)
  Sender: FDA-Public Use
  Company Number: AUR-APL-2010-01944

PATIENT
  Age: 71 Year
  Sex: Female
  Weight: 96.1626 kg

DRUGS (24)
  1. ASPIRIN [Concomitant]
  2. MURO [Concomitant]
  3. METOPROLOL [Suspect]
     Indication: HYPERTENSION
     Dosage: 100 MG, DAILY
     Dates: start: 20050101
  4. DICLOFENAC [Concomitant]
  5. TRAVATAN [Concomitant]
  6. POTASSIUM CHLORIDE [Concomitant]
  7. NAPROXEN [Concomitant]
  8. ASCORBIC ACID [Concomitant]
  9. LISINOPRIL [Suspect]
     Dosage: 20MG
     Dates: start: 20100223
  10. PRAVASTATIN [Concomitant]
  11. LISINOPRIL [Suspect]
     Dosage: 40MG
     Dates: start: 20071217, end: 20100222
  12. CELECOXIB [Suspect]
     Indication: RHEUMATOID ARTHRITIS
     Dosage: TID - ORAL
     Route: 048
     Dates: start: 20080702
  13. CELECOXIB [Suspect]
     Indication: OSTEOARTHRITIS
     Dosage: TID - ORAL
     Route: 048
     Dates: start: 20080702
  14. CRESTOR [Concomitant]
  15. HDYROCODONE/APAP [Concomitant]
  16. CENTRUM SILVER [Concomitant]
  17. ACTONEL [Concomitant]
  18. FUROSEMIDE [Concomitant]
  19. CALTRATE + VIT D [Concomitant]
  20. GARLIC [Concomitant]
  21. BRIMONIDINE TARTRATE [Concomitant]
  22. NEXIUM [Concomitant]
  23. TYLENOL (CAPLET) [Concomitant]
  24. VITAMIN E [Concomitant]

REACTIONS (5)
  - OSTEOARTHRITIS [None]
  - CONDITION AGGRAVATED [None]
  - SYNCOPE [None]
  - FALL [None]
  - HEAD INJURY [None]
